FAERS Safety Report 25477141 (Version 2)
Quarter: 2025Q3

REPORT INFORMATION
  Report Type: Spontaneous
  Country: SG (occurrence: SG)
  Receive Date: 20250625
  Receipt Date: 20250701
  Transmission Date: 20251021
  Serious: No
  Sender: TAKEDA
  Company Number: SG-JNJFOC-20250175310

PATIENT
  Age: 49 Year
  Sex: Female

DRUGS (1)
  1. VELCADE [Suspect]
     Active Substance: BORTEZOMIB
     Indication: Thymoma

REACTIONS (1)
  - Off label use [Unknown]
